FAERS Safety Report 15255606 (Version 2)
Quarter: 2019Q2

REPORT INFORMATION
  Report Type: Spontaneous
  Country: US (occurrence: US)
  Receive Date: 20180808
  Receipt Date: 20190425
  Transmission Date: 20190711
  Serious: Yes (Hospitalization, Other)
  Sender: FDA-Public Use
  Company Number: US-TEVA-2018-US-938901

PATIENT
  Age: 85 Year
  Sex: Female

DRUGS (1)
  1. ALLOPURINOL. [Suspect]
     Active Substance: ALLOPURINOL
     Indication: HYPERURICAEMIA
     Dosage: 300 MILLIGRAM DAILY;
     Route: 048

REACTIONS (6)
  - Acidosis [Recovered/Resolved]
  - Eye disorder [Unknown]
  - Stevens-Johnson syndrome [Recovered/Resolved]
  - Anuria [Recovered/Resolved]
  - Toxic epidermal necrolysis [Recovered/Resolved]
  - Septic shock [Unknown]
